FAERS Safety Report 5911104-6 (Version None)
Quarter: 2008Q4

REPORT INFORMATION
  Report Type: 
  Country: None (occurrence: None)
  Receive Date: 20081007
  Receipt Date: 20071212
  Transmission Date: 20090506
  Serious: No
  Sender: FDA-Public Use
  Company Number: US-BRISTOL-MYERS SQUIBB COMPANY-14013866

PATIENT
  Age: 74 Year
  Sex: Female
  Weight: 63 kg

DRUGS (7)
  1. AVAPRO [Suspect]
     Route: 048
     Dates: start: 20070401
  2. NEXIUM [Concomitant]
  3. ATENOLOL [Concomitant]
  4. TICLID [Concomitant]
  5. HYDROCHLOROTHIAZIDE [Concomitant]
  6. ZETIA [Concomitant]
  7. PAXIL [Concomitant]

REACTIONS (1)
  - COUGH [None]
